FAERS Safety Report 4936367-5 (Version None)
Quarter: 2006Q1

REPORT INFORMATION
  Report Type: 
  Country: None (occurrence: None)
  Receive Date: 20060302
  Receipt Date: 20060207
  Transmission Date: 20060701
  Serious: Yes (Disabling, Other)
  Sender: FDA-Public Use
  Company Number: USA030948443

PATIENT
  Age: 53 Year
  Sex: Female
  Weight: 127.3 kg

DRUGS (5)
  1. HUMALOG [Suspect]
     Indication: DIABETES MELLITUS
     Dosage: AS NEEDED, SUBCUTANEOUS
     Route: 058
     Dates: start: 19980101
  2. HUMULIN 70/30 [Suspect]
     Indication: DIABETES MELLITUS
     Dosage: 50 U EACH MORNING, SUBCUTANEOUS; 45 U EACH EVENING; 25 U EACH EVENING
     Route: 058
     Dates: start: 19850101
  3. HUMULIN 70/30 [Suspect]
     Indication: DIABETES MELLITUS
     Dosage: 50 U EACH MORNING, SUBCUTANEOUS; 45 U EACH EVENING; 25 U EACH EVENING
     Route: 058
     Dates: start: 19850101
  4. HUMULIN N [Suspect]
     Indication: DIABETES MELLITUS
     Dosage: SUBCUTANEOUS
     Route: 058
     Dates: start: 19790101, end: 19850101
  5. HUMALOG  PEN (HUMALOG PEN) PEN, DISPOSABLE [Concomitant]

REACTIONS (5)
  - BLINDNESS [None]
  - DIABETIC RETINOPATHY [None]
  - EYE DISORDER [None]
  - EYE HAEMORRHAGE [None]
  - SCAR [None]
